FAERS Safety Report 10140236 (Version 1)
Quarter: 2014Q2

REPORT INFORMATION
  Report Type: Spontaneous
  Country: IT (occurrence: IT)
  Receive Date: 20140429
  Receipt Date: 20140429
  Transmission Date: 20141212
  Serious: Yes (Other)
  Sender: FDA-Public Use
  Company Number: IT-TEVA-477847ISR

PATIENT
  Age: 46 Year
  Sex: Male
  Weight: 69 kg

DRUGS (7)
  1. VINCRISTINA TEVA ITALIA [Suspect]
     Indication: NON-HODGKIN^S LYMPHOMA
     Dosage: 2 MILLIGRAM DAILY;
     Route: 042
     Dates: start: 20130517, end: 20130926
  2. GRANISETRON CLORIDRATO [Concomitant]
     Indication: PROPHYLAXIS OF NAUSEA AND VOMITING
     Route: 042
  3. ACICLOVIR [Concomitant]
     Indication: ANTIVIRAL PROPHYLAXIS
     Route: 048
  4. MABTHERA [Concomitant]
     Indication: NON-HODGKIN^S LYMPHOMA
     Dosage: 650 MILLIGRAM DAILY;
     Route: 042
     Dates: start: 20130521, end: 20130926
  5. ENDOXAN BAXTER [Concomitant]
     Indication: NON-HODGKIN^S LYMPHOMA
     Dosage: 1300 MILLIGRAM DAILY;
     Route: 042
     Dates: start: 20130517, end: 20130926
  6. ADRIBLASTINA [Concomitant]
     Indication: NON-HODGKIN^S LYMPHOMA
     Dosage: 85 MILLIGRAM DAILY;
     Route: 042
     Dates: start: 20130517, end: 20130926
  7. URBASON SOLUBILE [Concomitant]
     Indication: NON-HODGKIN^S LYMPHOMA
     Dosage: 70 MILLIGRAM DAILY;
     Route: 042
     Dates: start: 20130517, end: 20130926

REACTIONS (4)
  - Aptyalism [Recovered/Resolved]
  - Mastication disorder [Recovered/Resolved]
  - Paraesthesia [Recovered/Resolved]
  - VIIth nerve paralysis [Recovered/Resolved]
